FAERS Safety Report 15665839 (Version 3)
Quarter: 2019Q1

REPORT INFORMATION
  Report Type: Spontaneous
  Country: JP (occurrence: JP)
  Receive Date: 20181128
  Receipt Date: 20190326
  Transmission Date: 20190417
  Serious: Yes (Hospitalization, Other)
  Sender: FDA-Public Use
  Company Number: PHJP2018JP019912

PATIENT
  Age: 41 Year
  Sex: Female
  Weight: 32.1 kg

DRUGS (12)
  1. LORAZEPAM. [Concomitant]
     Active Substance: LORAZEPAM
     Indication: DEPRESSION
     Dosage: 0.5 MG, BID (GIVEN VIA GASTROSTOMA)
     Route: 050
     Dates: start: 20180510, end: 20180604
  2. LIORESAL [Concomitant]
     Active Substance: BACLOFEN
     Indication: MUSCLE SPASMS
     Dosage: 5 MG, QD
     Route: 048
     Dates: start: 20170417, end: 20170611
  3. BELSOMRA [Concomitant]
     Active Substance: SUVOREXANT
     Indication: INSOMNIA
     Dosage: 15 MG, QD
     Route: 048
     Dates: start: 20180528, end: 20180530
  4. CEREDIST [Concomitant]
     Active Substance: TALTIRELIN
     Indication: SPINOCEREBELLAR DISORDER
     Dosage: 5 MG, BID (GIVEN VIA GASTROSTOMA)
     Route: 050
     Dates: start: 20170220
  5. TEGRETOL [Suspect]
     Active Substance: CARBAMAZEPINE
     Indication: MUSCLE SPASMS
     Dosage: 400 MG, QD (GIVEN VIA GASTROSTOMA)
     Route: 065
     Dates: start: 20180529, end: 20180530
  6. LIORESAL [Concomitant]
     Active Substance: BACLOFEN
     Indication: HYPOTONIA
     Dosage: 5 MG, BID
     Route: 048
     Dates: start: 20170612, end: 20180606
  7. TEGRETOL [Suspect]
     Active Substance: CARBAMAZEPINE
     Indication: SPINOCEREBELLAR DISORDER
     Dosage: 800 MG, QD (GIVEN VIA GASTROSTOMA)
     Route: 065
     Dates: start: 20180531, end: 20180606
  8. ZOLPIDEM TARTRATE. [Concomitant]
     Active Substance: ZOLPIDEM TARTRATE
     Indication: INSOMNIA
     Dosage: 5 MG, QD
     Route: 048
     Dates: start: 20180528, end: 20180601
  9. RISPERIDONE. [Concomitant]
     Active Substance: RISPERIDONE
     Indication: RESTLESSNESS
     Dosage: 1 MG, QD
     Route: 048
     Dates: start: 20180528, end: 20180528
  10. ROZEREM [Concomitant]
     Active Substance: RAMELTEON
     Indication: INSOMNIA
     Dosage: 8 MG, QD (GIVEN VIA GASTROSTOMA)
     Route: 050
     Dates: start: 20180528, end: 20181010
  11. SEDIEL [Concomitant]
     Active Substance: TANDOSPIRONE
     Indication: SLEEP DISORDER
     Dosage: 30 MG, UNK (GIVEN VIA GASTROSTOMA)
     Route: 050
     Dates: start: 20170220, end: 20180604
  12. TANDOSPIRONE CITRATE [Concomitant]
     Active Substance: TANDOSPIRONE CITRATE
     Indication: DEPRESSION
     Dosage: UNK
     Route: 048

REACTIONS (5)
  - Somnolence [Recovering/Resolving]
  - Muscle spasms [Recovered/Resolved]
  - Hyponatraemia [Recovered/Resolved]
  - Infective myositis [Recovering/Resolving]
  - Inappropriate antidiuretic hormone secretion [Unknown]

NARRATIVE: CASE EVENT DATE: 20180604
